FAERS Safety Report 17675458 (Version 1)
Quarter: 2020Q2

REPORT INFORMATION
  Report Type: Spontaneous
  Country: US (occurrence: US)
  Receive Date: 20200416
  Receipt Date: 20200416
  Transmission Date: 20200714
  Serious: Yes (Other)
  Sender: FDA-Public Use
  Company Number: US-SUNOVION-2020SUN001168

PATIENT
  Sex: Female

DRUGS (1)
  1. LATUDA [Suspect]
     Active Substance: LURASIDONE HYDROCHLORIDE
     Indication: BIPOLAR DISORDER
     Dosage: 40 MG, QID (4 TIMES A DAY)
     Route: 048

REACTIONS (4)
  - Overdose [Unknown]
  - Gastric bypass [Not Recovered/Not Resolved]
  - Off label use [Unknown]
  - Malabsorption [Not Recovered/Not Resolved]
